FAERS Safety Report 4792078-0 (Version None)
Quarter: 2005Q4

REPORT INFORMATION
  Report Type: 
  Country: None (occurrence: None)
  Receive Date: 20051007
  Receipt Date: 20030605
  Transmission Date: 20060501
  Serious: Yes (Hospitalization, Other)
  Sender: FDA-Public Use
  Company Number: US-MERCK-0306USA00744

PATIENT
  Age: 49 Year
  Sex: Male
  Weight: 109 kg

DRUGS (26)
  1. VIOXX [Suspect]
     Indication: ARTHRITIS
     Route: 048
     Dates: start: 20000601, end: 20010201
  2. VIOXX [Suspect]
     Route: 065
     Dates: start: 20010201, end: 20010101
  3. VIOXX [Suspect]
     Route: 065
  4. VIOXX [Suspect]
     Route: 048
     Dates: start: 19990701, end: 19990801
  5. VIOXX [Suspect]
     Route: 048
     Dates: start: 19990801
  6. VIOXX [Suspect]
     Indication: SYSTEMIC LUPUS ERYTHEMATOSUS
     Route: 048
     Dates: start: 20000601, end: 20010201
  7. VIOXX [Suspect]
     Route: 065
     Dates: start: 20010201, end: 20010101
  8. VIOXX [Suspect]
     Route: 065
  9. VIOXX [Suspect]
     Route: 048
     Dates: start: 19990701, end: 19990801
  10. VIOXX [Suspect]
     Route: 048
     Dates: start: 19990801
  11. PREDNISONE [Concomitant]
     Route: 065
  12. PREDNISONE [Concomitant]
     Route: 065
  13. VICODIN [Concomitant]
     Route: 065
  14. METHOTREXATE [Concomitant]
     Route: 065
  15. METHOTREXATE [Concomitant]
     Route: 065
  16. FOLIC ACID [Concomitant]
     Route: 065
  17. FOLIC ACID [Concomitant]
     Route: 065
  18. LASIX [Concomitant]
     Route: 065
  19. LASIX [Concomitant]
     Route: 048
  20. MULTIVITAMIN [Concomitant]
     Route: 065
  21. CAL-CITRATE [Concomitant]
     Route: 065
  22. LOVENOX [Concomitant]
     Route: 065
  23. COUMADIN [Concomitant]
     Route: 065
  24. PLAVIX [Concomitant]
     Route: 065
  25. ZOLOFT [Concomitant]
     Route: 065
  26. ACIPHEX [Concomitant]
     Route: 065

REACTIONS (26)
  - ANGINA PECTORIS [None]
  - ARTHRALGIA [None]
  - ASTHENIA [None]
  - BLOOD PRESSURE INCREASED [None]
  - BURSITIS [None]
  - CONVULSION [None]
  - CORONARY ARTERY DISEASE [None]
  - DEPRESSION [None]
  - DRUG INEFFECTIVE [None]
  - HEADACHE [None]
  - INTERNATIONAL NORMALISED RATIO DECREASED [None]
  - JOINT INJURY [None]
  - JOINT SWELLING [None]
  - LACUNAR INFARCTION [None]
  - LUNG NEOPLASM [None]
  - MITRAL VALVE INCOMPETENCE [None]
  - MUSCLE SPASMS [None]
  - MYOCARDIAL INFARCTION [None]
  - OSTEOPENIA [None]
  - PAIN IN EXTREMITY [None]
  - PROTHROMBIN TIME ABNORMAL [None]
  - RASH MACULO-PAPULAR [None]
  - RHEUMATOID ARTHRITIS [None]
  - ROAD TRAFFIC ACCIDENT [None]
  - TRANSIENT ISCHAEMIC ATTACK [None]
  - UNEVALUABLE EVENT [None]
